FAERS Safety Report 24325981 (Version 8)
Quarter: 2025Q4

REPORT INFORMATION
  Report Type: Report from Study
  Country: CO (occurrence: CO)
  Receive Date: 20240917
  Receipt Date: 20251006
  Transmission Date: 20260119
  Serious: Yes (Hospitalization, Other)
  Sender: TAKEDA
  Company Number: CO-TAKEDA-2024TUS047144

PATIENT
  Age: 36 Year
  Sex: Female
  Weight: 70 kg

DRUGS (1)
  1. VEDOLIZUMAB [Suspect]
     Active Substance: VEDOLIZUMAB
     Indication: Crohn^s disease
     Dosage: 300 MILLIGRAM, Q4WEEKS
     Dates: start: 20220426

REACTIONS (18)
  - Vomiting [Unknown]
  - Nausea [Recovering/Resolving]
  - Syncope [Recovered/Resolved]
  - Abdominal pain [Unknown]
  - Blood pressure decreased [Recovering/Resolving]
  - Dizziness [Recovered/Resolved]
  - Skin papilloma [Unknown]
  - Skin mass [Unknown]
  - Heart sounds abnormal [Unknown]
  - Vertigo [Recovered/Resolved]
  - Weight increased [Unknown]
  - Body height increased [Unknown]
  - Drug ineffective [Unknown]
  - Secretion discharge [Unknown]
  - Chest pain [Recovered/Resolved]
  - Lymphadenopathy [Unknown]
  - Fatigue [Recovered/Resolved]
  - Influenza [Unknown]

NARRATIVE: CASE EVENT DATE: 20240508
